FAERS Safety Report 19153210 (Version 1)
Quarter: 2021Q2

REPORT INFORMATION
  Report Type: Not Available
  Country: DE (occurrence: DE)
  Receive Date: 20210419
  Receipt Date: 20210419
  Transmission Date: 20210717
  Serious: Yes (Other)
  Sender: FDA-Public Use
  Company Number: DE-SYNTHON BV-IN51PV21_58867

PATIENT
  Age: 54 Year
  Sex: Male
  Weight: 90 kg

DRUGS (7)
  1. GABAPENTIN. [Concomitant]
     Active Substance: GABAPENTIN
     Dosage: 300 MILLIGRAM, 3 STUCK TAGLICH
     Route: 065
     Dates: start: 202009
  2. JANUVIA [Suspect]
     Active Substance: SITAGLIPTIN PHOSPHATE
     Indication: PRODUCT USED FOR UNKNOWN INDICATION
     Dosage: 50 MILLIGRAM, 1 STUCK TAGLICH
     Route: 065
     Dates: start: 201903
  3. INDAPAMID HEUMANN [Concomitant]
     Dosage: 1.5 MILLIGRAM, 1 STUCK TAGLICH
     Route: 065
     Dates: start: 201903
  4. TAMSULOSIN ESPARMA [Suspect]
     Active Substance: TAMSULOSIN
     Indication: PRODUCT USED FOR UNKNOWN INDICATION
     Dosage: 0.4 MILLIGRAM, 1/1 DAY(S) (1 STUCK TAGLICH)
     Route: 065
     Dates: start: 201903
  5. ATORVASTATIN AL [Concomitant]
     Active Substance: ATORVASTATIN CALCIUM
     Dosage: 20 MILLIGRAM, 1 STUCK TAGLICH
     Route: 065
     Dates: start: 202103
  6. RAMILICH [Suspect]
     Active Substance: RAMIPRIL
     Indication: PRODUCT USED FOR UNKNOWN INDICATION
     Dosage: 5 MILLIGRAM, 1 STUCK TAGLICH
     Route: 065
     Dates: start: 201703
  7. ASS ABZ PROTECT [Concomitant]
     Dosage: 100 MILLIGRAM, 1 STUCK TAGLICH
     Route: 065
     Dates: start: 201903

REACTIONS (1)
  - Erectile dysfunction [Not Recovered/Not Resolved]

NARRATIVE: CASE EVENT DATE: 201903
